FAERS Safety Report 7299879-8 (Version None)
Quarter: 2011Q1

REPORT INFORMATION
  Report Type: 
  Country: None (occurrence: None)
  Receive Date: 20110208
  Receipt Date: 20110124
  Transmission Date: 20110831
  Serious: Yes (Death, Hospitalization)
  Sender: FDA-Public Use
  Company Number: 2009002240

PATIENT
  Age: 61 Year
  Sex: Male
  Weight: 58.4 kg

DRUGS (8)
  1. NOVAMIN (PROCHLORPERAZINE) [Concomitant]
  2. ERLOTINIB (ERLOTINIB) (TABLET) (ERLOTINIB) [Suspect]
     Indication: LUNG ADENOCARCINOMA
     Dosage: (150 MG, QD), ORAL
     Route: 048
     Dates: start: 20080923, end: 20081016
  3. CYTOTECT (IMMUNOGLOBULIN CYTOMEGALOVIRUS) [Concomitant]
  4. OXYCONTIN [Concomitant]
  5. MAGNESIUM OXIDE (MAGNESIUM OXIDE) [Concomitant]
  6. CIBENOL (CIBENZOLINE SUCCINATE) [Concomitant]
  7. LOXOPROFEN SODIUM (LOXOPROFEN SODIUM) [Concomitant]
  8. OXINROM (ORGOTEIN) [Concomitant]

REACTIONS (10)
  - METASTASES TO LIVER [None]
  - LABORATORY TEST ABNORMAL [None]
  - INTERSTITIAL LUNG DISEASE [None]
  - CONDITION AGGRAVATED [None]
  - NON-SMALL CELL LUNG CANCER METASTATIC [None]
  - NEOPLASM MALIGNANT [None]
  - RESPIRATORY FAILURE [None]
  - BLOOD LACTATE DEHYDROGENASE INCREASED [None]
  - PULMONARY EMBOLISM [None]
  - METASTASES TO LUNG [None]
